FAERS Safety Report 5521608-6 (Version None)
Quarter: 2007Q4

REPORT INFORMATION
  Report Type: 
  Country: None (occurrence: None)
  Receive Date: 20071120
  Receipt Date: 20071115
  Transmission Date: 20080405
  Serious: Yes (Hospitalization)
  Sender: FDA-Public Use
  Company Number: JP-BRISTOL-MYERS SQUIBB COMPANY-13966098

PATIENT
  Age: 66 Year
  Sex: Male

DRUGS (13)
  1. PARAPLATIN [Suspect]
     Indication: NON-SMALL CELL LUNG CANCER
     Dosage: CYCLE 1: 06-SEP-2007, CYCLE 2: 27-SEP-2007.
     Route: 041
     Dates: start: 20070906, end: 20071018
  2. TAXOL [Suspect]
     Indication: NON-SMALL CELL LUNG CANCER
     Dosage: CYCLE 1: 06-SEP-2007, CYCLE 2: 27-SEP-2007.
     Route: 041
     Dates: start: 20070906, end: 20071018
  3. AVASTIN [Suspect]
     Indication: NON-SMALL CELL LUNG CANCER
     Dosage: CYCLE 1: 06-SEP-2007, CYCLE: 27-SEP-2007.
     Route: 041
     Dates: start: 20070906, end: 20071018
  4. MOBIC [Concomitant]
     Route: 048
  5. RABEPRAZOLE SODIUM [Concomitant]
     Route: 048
  6. MUCOSTA [Concomitant]
     Route: 048
  7. AMLODIN [Concomitant]
     Route: 048
  8. MAGMITT [Concomitant]
     Route: 048
  9. NOVAMIN [Concomitant]
     Route: 048
  10. OXYCONTIN [Concomitant]
     Route: 048
  11. OPSO [Concomitant]
     Route: 048
  12. LOXOPROFEN [Concomitant]
     Route: 048
     Dates: start: 20071012
  13. LACTEC [Concomitant]
     Route: 041
     Dates: start: 20070913

REACTIONS (3)
  - HYPOXIA [None]
  - MALIGNANT NEOPLASM PROGRESSION [None]
  - PNEUMONIA [None]
